FAERS Safety Report 11276042 (Version 1)
Quarter: 2015Q2

REPORT INFORMATION
  Report Type: Spontaneous
  Country: US (occurrence: None)
  Receive Date: 20150625
  Receipt Date: 20150625
  Transmission Date: 20150821
  Serious: No
  Sender: FDA-Public Use
  Company Number: A-NJ2015-114750

PATIENT
  Age: 51 Year
  Sex: Female

DRUGS (11)
  1. CYTOMEL (LIOTHYRONINE SODIUM) [Concomitant]
  2. FERROUS SULFATE [Concomitant]
     Active Substance: FERROUS SULFATE\FERROUS SULFATE, DRIED
  3. RITUXAN [Concomitant]
     Active Substance: RITUXIMAB
  4. PRILOSEC (OMEPRAZOLE) [Concomitant]
     Active Substance: OMEPRAZOLE MAGNESIUM
  5. TYVASO [Suspect]
     Active Substance: TREPROSTINIL
     Indication: PULMONARY ARTERIAL HYPERTENSION
     Dosage: 54 MCG, (9 BREATHS) QID, RESPIRATORY
     Route: 055
     Dates: start: 20141111
  6. PLAQUENIL (HYDROXYCHLOROQUINE PHOSPHATE) [Concomitant]
     Active Substance: HYDROXYCHLOROQUINE SULFATE
  7. SYNTHROID [Concomitant]
     Active Substance: LEVOTHYROXINE SODIUM
  8. LASIX [Concomitant]
     Active Substance: FUROSEMIDE
  9. MECLIZINE (MECLOZINE) [Concomitant]
  10. OPSUMIT [Suspect]
     Active Substance: MACITENTAN
     Indication: PULMONARY ARTERIAL HYPERTENSION
     Route: 048
     Dates: start: 20150122, end: 20150313
  11. ADCIRCA [Concomitant]
     Active Substance: TADALAFIL

REACTIONS (3)
  - Bronchitis [None]
  - Nasal congestion [None]
  - Chest pain [None]

NARRATIVE: CASE EVENT DATE: 20150125
